FAERS Safety Report 4919278-0 (Version None)
Quarter: 2006Q1

REPORT INFORMATION
  Report Type: 
  Country: None (occurrence: None)
  Receive Date: 20060215
  Receipt Date: 20060201
  Transmission Date: 20060701
  Serious: Yes (Hospitalization)
  Sender: FDA-Public Use
  Company Number: 2005BI016906

PATIENT
  Age: 50 Year
  Sex: Female

DRUGS (25)
  1. AVONEX [Suspect]
     Indication: MULTIPLE SCLEROSIS
     Dosage: 30 UG QW IM
     Route: 030
     Dates: start: 20021201, end: 20040101
  2. AVONEX [Suspect]
     Indication: MULTIPLE SCLEROSIS
     Dosage: 30 UG QW IM
     Route: 030
     Dates: start: 20040101, end: 20050301
  3. AMEVIVE [Concomitant]
  4. ZETIA [Concomitant]
  5. VITAMIN D [Concomitant]
  6. ENABLEX [Concomitant]
  7. CLONIDINE [Concomitant]
  8. FEOSOL [Concomitant]
  9. IMITREX [Concomitant]
  10. LOTREL [Concomitant]
  11. NORVASC [Concomitant]
  12. NEURONTIN [Concomitant]
  13. SCOPOLAMINE [Concomitant]
  14. PROVIGIL [Concomitant]
  15. TRIAMCINOLONE [Concomitant]
  16. VITAMIN B-12 [Concomitant]
  17. FISH OIL [Concomitant]
  18. ZOLOFT [Concomitant]
  19. ASCORBIC ACID [Concomitant]
  20. NAPROSYN [Concomitant]
  21. TYLENOL W/ CODEINE NO. 3 [Concomitant]
  22. CELLCEPT [Concomitant]
  23. BETAMETHASONE [Concomitant]
  24. ALBUTEROL [Concomitant]
  25. ADVAIR DISKUS 100/50 [Concomitant]

REACTIONS (4)
  - PNEUMONIA [None]
  - POST PROCEDURAL COMPLICATION [None]
  - PSORIASIS [None]
  - RED BLOOD CELL COUNT DECREASED [None]
